FAERS Safety Report 20899320 (Version 1)
Quarter: 2022Q2

REPORT INFORMATION
  Report Type: Spontaneous
  Country: US (occurrence: US)
  Receive Date: 20220601
  Receipt Date: 20220601
  Transmission Date: 20220721
  Serious: Yes (Other)
  Sender: FDA-Public Use
  Company Number: US-BRISTOL-MYERS SQUIBB COMPANY-2022-045927

PATIENT
  Age: 60 Year
  Sex: Male

DRUGS (9)
  1. REVLIMID [Suspect]
     Active Substance: LENALIDOMIDE
     Indication: Follicular lymphoma
     Dosage: DOSE : 20 MG; 15 MG;     FREQ : ONCE DAILY X 21 DAYS ON, 7 DAYS OFF
     Route: 048
     Dates: start: 202110
  2. REVLIMID [Suspect]
     Active Substance: LENALIDOMIDE
     Route: 048
  3. ASPIRIN [Concomitant]
     Active Substance: ASPIRIN
  4. FOLIC ACID [Concomitant]
     Active Substance: FOLIC ACID
  5. PREDNISONE [Concomitant]
     Active Substance: PREDNISONE
  6. ZYTIGA [Concomitant]
     Active Substance: ABIRATERONE ACETATE
  7. LUPRON [Concomitant]
     Active Substance: LEUPROLIDE ACETATE
  8. ADDERALL [Concomitant]
     Active Substance: AMPHETAMINE ASPARTATE\AMPHETAMINE SULFATE\DEXTROAMPHETAMINE SACCHARATE\DEXTROAMPHETAMINE SULFATE
  9. MORPHINE [Concomitant]
     Active Substance: MORPHINE

REACTIONS (4)
  - Pain [Unknown]
  - Weight decreased [Unknown]
  - Attention deficit hyperactivity disorder [Unknown]
  - Prostate cancer metastatic [Unknown]

NARRATIVE: CASE EVENT DATE: 20211201
